FAERS Safety Report 6440343-3 (Version None)
Quarter: 2009Q4

REPORT INFORMATION
  Report Type: 
  Country: None (occurrence: None)
  Receive Date: 20091113
  Receipt Date: 20091102
  Transmission Date: 20100525
  Serious: Yes (Hospitalization)
  Sender: FDA-Public Use
  Company Number: PHHY2009JP48068

PATIENT
  Age: 83 Year
  Sex: Female

DRUGS (1)
  1. ZOMETA [Suspect]
     Indication: MULTIPLE MYELOMA
     Dosage: UNK
     Route: 042
     Dates: end: 20090701

REACTIONS (4)
  - GINGIVAL SWELLING [None]
  - OSTEONECROSIS [None]
  - PAIN [None]
  - SEQUESTRECTOMY [None]
